FAERS Safety Report 23790594 (Version 1)
Quarter: 2024Q2

REPORT INFORMATION
  Report Type: Spontaneous
  Country: GB (occurrence: GB)
  Receive Date: 20240427
  Receipt Date: 20240427
  Transmission Date: 20240716
  Serious: Yes (Death, Other)
  Sender: FDA-Public Use
  Company Number: GB-AMGEN-GBRSP2024082225

PATIENT

DRUGS (1)
  1. SOTORASIB [Suspect]
     Active Substance: SOTORASIB
     Indication: Non-small cell lung cancer
     Dosage: UNK
     Route: 065

REACTIONS (6)
  - Death [Fatal]
  - Hepatotoxicity [Unknown]
  - Non-small cell lung cancer [Unknown]
  - Pulmonary fibrosis [Unknown]
  - Therapy partial responder [Unknown]
  - Diarrhoea [Unknown]
